FAERS Safety Report 4694270-2 (Version None)
Quarter: 2005Q2

REPORT INFORMATION
  Report Type: 
  Country: None (occurrence: None)
  Receive Date: 20050620
  Receipt Date: 20050606
  Transmission Date: 20051028
  Serious: Yes (Other)
  Sender: FDA-Public Use
  Company Number: GB-BOEHRINGER INGELHEIM PHARMACEUTICALS, INC.-2005-BP-10202YA

PATIENT
  Sex: Male

DRUGS (3)
  1. FLOMAX [Suspect]
     Indication: URGE INCONTINENCE
     Route: 048
     Dates: start: 20050429
  2. PERGOLIDE MESYLATE [Concomitant]
     Indication: PARKINSON'S DISEASE
     Route: 048
  3. FLUOXETINE [Concomitant]
     Indication: DEPRESSION
     Route: 048

REACTIONS (1)
  - PARKINSON'S DISEASE [None]
